FAERS Safety Report 7463573-0 (Version None)
Quarter: 2011Q2

REPORT INFORMATION
  Report Type: 
  Country: None (occurrence: None)
  Receive Date: 20110506
  Receipt Date: 20110503
  Transmission Date: 20111010
  Serious: Yes (Other)
  Sender: FDA-Public Use
  Company Number: FR-PFIZER INC-2011094794

PATIENT
  Age: 64 Year
  Sex: Female

DRUGS (3)
  1. EFFEXOR XR [Suspect]
     Dosage: 75 MG, 3X/DAY
     Dates: start: 20100101
  2. TERALITHE [Concomitant]
     Dosage: UNK
  3. EFFEXOR XR [Suspect]
     Dosage: UNK
     Dates: end: 20110101

REACTIONS (1)
  - PARKINSON'S DISEASE [None]
